FAERS Safety Report 8086707-6 (Version None)
Quarter: 2012Q1

REPORT INFORMATION
  Report Type: 
  Country: None (occurrence: None)
  Receive Date: 20120128
  Receipt Date: 20110612
  Transmission Date: 20120608
  Serious: No
  Sender: FDA-Public Use
  Company Number: US-ABBOTT-11P-163-0731828-00

PATIENT
  Age: 79 Year
  Sex: Female

DRUGS (4)
  1. MULTI-VITAMIN [Concomitant]
     Indication: VITAMIN SUPPLEMENTATION
  2. CALCIUM D [Concomitant]
     Indication: MINERAL SUPPLEMENTATION
  3. HUMIRA [Suspect]
     Indication: RHEUMATOID ARTHRITIS
     Dates: start: 20090601
  4. FOLIC ACID [Concomitant]
     Indication: ALOPECIA

REACTIONS (3)
  - RASH PAPULAR [None]
  - EXFOLIATIVE RASH [None]
  - RASH PRURITIC [None]
